FAERS Safety Report 23933440 (Version 2)
Quarter: 2024Q2

REPORT INFORMATION
  Report Type: Spontaneous
  Country: US (occurrence: US)
  Receive Date: 20240603
  Receipt Date: 20240611
  Transmission Date: 20240716
  Serious: No
  Sender: FDA-Public Use
  Company Number: None

PATIENT
  Age: 62 Year
  Sex: Female

DRUGS (8)
  1. PREGABALIN [Suspect]
     Active Substance: PREGABALIN
     Indication: Restless legs syndrome
  2. ROPINIROLE [Suspect]
     Active Substance: ROPINIROLE
     Indication: Restless legs syndrome
     Dosage: 0.25MG IN THE AM
  3. ROPINIROLE [Suspect]
     Active Substance: ROPINIROLE
     Dosage: IN THE EVENING
  4. ROPINIROLE [Suspect]
     Active Substance: ROPINIROLE
     Dosage: IN THE AM
  5. GABAPENTIN [Suspect]
     Active Substance: GABAPENTIN
     Indication: Restless legs syndrome
  6. HYDROMORPHONE [Concomitant]
     Active Substance: HYDROMORPHONE
     Indication: Restless legs syndrome
  7. MORPHINE [Concomitant]
     Active Substance: MORPHINE
     Indication: Restless legs syndrome
  8. ZOLPIDEM [Concomitant]
     Active Substance: ZOLPIDEM TARTRATE
     Indication: Insomnia

REACTIONS (3)
  - Drug ineffective for unapproved indication [Unknown]
  - Oral mucosal blistering [Unknown]
  - Sedation [Unknown]
